FAERS Safety Report 5140718-9 (Version None)
Quarter: 2006Q4

REPORT INFORMATION
  Report Type: 
  Country: None (occurrence: None)
  Receive Date: 20061025
  Receipt Date: 20061016
  Transmission Date: 20070319
  Serious: Yes (Death)
  Sender: FDA-Public Use
  Company Number: 231210

PATIENT
  Age: 7 Year
  Sex: Male

DRUGS (3)
  1. RITUXAN [Suspect]
     Indication: DIFFUSE LARGE B-CELL LYMPHOMA
  2. METHOTREXATE [Concomitant]
  3. CYTARABINE [Concomitant]

REACTIONS (3)
  - CONDITION AGGRAVATED [None]
  - HAEMODIALYSIS [None]
  - HEPATITIS B [None]
